FAERS Safety Report 20016508 (Version 1)
Quarter: 2021Q4

REPORT INFORMATION
  Report Type: Spontaneous
  Country: US (occurrence: None)
  Receive Date: 20211104
  Receipt Date: 20211104
  Transmission Date: 20220304
  Serious: Yes (Other)
  Sender: FDA-Public Use
  Company Number: None

PATIENT
  Age: 71 Year
  Sex: Male
  Weight: 72.7 kg

DRUGS (1)
  1. RITUXAN [Suspect]
     Active Substance: RITUXIMAB
     Indication: Follicular lymphoma
     Dosage: OTHER FREQUENCY : EVERY 3 WEEKS;?
     Route: 042
     Dates: start: 20210811, end: 20210811

REACTIONS (3)
  - Tongue pruritus [None]
  - Throat tightness [None]
  - Hypersensitivity [None]

NARRATIVE: CASE EVENT DATE: 20210811
